FAERS Safety Report 12464809 (Version 5)
Quarter: 2023Q1

REPORT INFORMATION
  Report Type: Spontaneous
  Country: US (occurrence: US)
  Receive Date: 20160614
  Receipt Date: 20230224
  Transmission Date: 20230418
  Serious: No
  Sender: FDA-Public Use
  Company Number: US-PFIZER INC-2016286593

PATIENT
  Age: 75 Year
  Sex: Female

DRUGS (3)
  1. SUTENT [Suspect]
     Active Substance: SUNITINIB MALATE
     Indication: Pancreatic carcinoma
     Dosage: 50 MG, CYCLIC (ONCE DAILY, TAKE 1 CAPSULE BY MOUTH EVERY DAY FOR 4 WEEKS, THEN 2 WEEKS OFF)
     Route: 048
  2. SUTENT [Suspect]
     Active Substance: SUNITINIB MALATE
     Dosage: 50 MG, DAILY [TAKE 1 PO QD (ONCE DAILY)]
     Route: 048
  3. VITAMIN D [Concomitant]
     Active Substance: VITAMIN D NOS
     Dosage: 5000 IU

REACTIONS (2)
  - Abdominal discomfort [Not Recovered/Not Resolved]
  - Full blood count abnormal [Unknown]
